FAERS Safety Report 22660561 (Version 1)
Quarter: 2023Q2

REPORT INFORMATION
  Report Type: Report from Study
  Country: US (occurrence: US)
  Receive Date: 20230630
  Receipt Date: 20230630
  Transmission Date: 20230722
  Serious: Yes (Hospitalization, Other)
  Sender: FDA-Public Use
  Company Number: US-MYLANLABS-2023M1067645

PATIENT
  Age: 82 Year
  Sex: Female
  Weight: 95.71 kg

DRUGS (1)
  1. YUPELRI [Suspect]
     Active Substance: REVEFENACIN
     Indication: Chronic obstructive pulmonary disease
     Dosage: 175/3 MICROGRAM PER MILLILITRE QD
     Route: 055
     Dates: start: 20230310, end: 20230401

REACTIONS (4)
  - Blister [Unknown]
  - Peripheral swelling [Unknown]
  - Urinary retention [Recovered/Resolved]
  - Wound [Unknown]

NARRATIVE: CASE EVENT DATE: 20230310
